FAERS Safety Report 22046895 (Version 2)
Quarter: 2023Q1

REPORT INFORMATION
  Report Type: Spontaneous
  Country: US (occurrence: US)
  Receive Date: 20230228
  Receipt Date: 20230328
  Transmission Date: 20230418
  Serious: Yes (Other)
  Sender: FDA-Public Use
  Company Number: US-BRISTOL-MYERS SQUIBB COMPANY-2023-026209

PATIENT
  Age: 72 Year
  Sex: Female

DRUGS (1)
  1. POMALYST [Suspect]
     Active Substance: POMALIDOMIDE
     Indication: Plasma cell myeloma
     Dosage: FREQUENCY: TAKE 1 CAPSULE BY MOUTH DAILY ON DAYS 1-21 OF EACH 28-DAY CYCLE. TAKE WHOLE W/ WATER, W/
     Route: 048

REACTIONS (11)
  - Decreased appetite [Unknown]
  - Asthenia [Unknown]
  - Immunodeficiency [Unknown]
  - Constipation [Unknown]
  - Cardiac failure [Unknown]
  - Swelling [Unknown]
  - Thrombosis [Unknown]
  - Trismus [Unknown]
  - Chest pain [Unknown]
  - Pain [Unknown]
  - Nausea [Unknown]
